FAERS Safety Report 10423753 (Version 1)
Quarter: 2014Q3

REPORT INFORMATION
  Report Type: Spontaneous
  Country: US (occurrence: None)
  Receive Date: 20140722
  Receipt Date: 20140722
  Transmission Date: 20150326
  Serious: No
  Sender: FDA-Public Use
  Company Number: AEGR000525

PATIENT
  Age: 61 Year
  Sex: Male
  Weight: 89.8 kg

DRUGS (7)
  1. OMEPRAZOLE (OMEPRAZOLE) [Concomitant]
     Active Substance: OMEPRAZOLE
  2. ASPIRIN (ACETYLSALICYLIC ACID) [Concomitant]
     Active Substance: ASPIRIN
  3. ONGLUZA (SAXAGLIPTIN HYDROCHLORIDE) [Concomitant]
  4. FENOFIBRATE (FENOFIBRATE) [Concomitant]
  5. JUXTAPID [Suspect]
     Active Substance: LOMITAPIDE MESYLATE
     Indication: PRODUCT USED FOR UNKNOWN INDICATION
     Route: 048
     Dates: start: 20140312
  6. VICODIN (HYDROCODONE BITARTRATE, PARACFETAMOL) [Concomitant]
  7. LISINOPRIL (LISINOPRIL) [Concomitant]
     Active Substance: LISINOPRIL

REACTIONS (4)
  - Nausea [None]
  - Product used for unknown indication [None]
  - Faeces discoloured [None]
  - Hepatic enzyme abnormal [None]

NARRATIVE: CASE EVENT DATE: 20140312
